FAERS Safety Report 4979352-X (Version None)
Quarter: 2006Q2

REPORT INFORMATION
  Report Type: 
  Country: None (occurrence: None)
  Receive Date: 20060421
  Receipt Date: 20050718
  Transmission Date: 20061013
  Serious: Yes (Hospitalization)
  Sender: FDA-Public Use
  Company Number: US-MERCK-0507USA02263

PATIENT
  Age: 59 Year
  Sex: Male
  Weight: 73 kg

DRUGS (1)
  1. VIOXX [Suspect]
     Indication: JOINT INJURY
     Route: 048
     Dates: start: 20010202, end: 20021101

REACTIONS (30)
  - ACUTE MYOCARDIAL INFARCTION [None]
  - ANXIETY [None]
  - ARTERIOSCLEROSIS [None]
  - BLISTER [None]
  - CHEST DISCOMFORT [None]
  - CONJUNCTIVITIS [None]
  - CORONARY ARTERY DISEASE [None]
  - CORONARY ARTERY OCCLUSION [None]
  - CYST [None]
  - DACRYOCYSTITIS INFECTIVE [None]
  - DISEASE RECURRENCE [None]
  - DYSPHAGIA [None]
  - DYSPNOEA [None]
  - ELECTROCARDIOGRAM T WAVE INVERSION [None]
  - EMBOLISM [None]
  - GANGLION [None]
  - GENERAL PHYSICAL HEALTH DETERIORATION [None]
  - HYPERHIDROSIS [None]
  - HYPERLIPIDAEMIA [None]
  - INGUINAL HERNIA [None]
  - MUSCLE TIGHTNESS [None]
  - NAIL HYPERTROPHY [None]
  - NON-CARDIAC CHEST PAIN [None]
  - OESOPHAGEAL STENOSIS [None]
  - PAIN [None]
  - PERIARTHRITIS [None]
  - PERIPHERAL EMBOLISM [None]
  - PERIPHERAL VASCULAR DISORDER [None]
  - RASH [None]
  - RASH MACULAR [None]
